FAERS Safety Report 17950663 (Version 1)
Quarter: 2020Q2

REPORT INFORMATION
  Report Type: Spontaneous
  Country: CA (occurrence: CA)
  Receive Date: 20200626
  Receipt Date: 20200626
  Transmission Date: 20200714
  Serious: Yes (Hospitalization)
  Sender: FDA-Public Use
  Company Number: NVSC2020CA179793

PATIENT
  Age: 87 Year
  Sex: Female

DRUGS (1)
  1. PHENYLEPHRINE HYDROCHLORIDE INJECTION USP [Suspect]
     Active Substance: PHENYLEPHRINE HYDROCHLORIDE
     Indication: PROCEDURAL HYPOTENSION
     Dosage: UNK
     Route: 041

REACTIONS (4)
  - Hypotension [Unknown]
  - Myocardial ischaemia [Unknown]
  - Troponin increased [Unknown]
  - Chest pain [Unknown]
